FAERS Safety Report 20729870 (Version 1)
Quarter: 2022Q2

REPORT INFORMATION
  Report Type: Other
  Country: CA (occurrence: CA)
  Receive Date: 20220420
  Receipt Date: 20220420
  Transmission Date: 20220720
  Serious: Yes (Other)
  Sender: FDA-Public Use
  Company Number: CA-PFIZER INC-202200545711

PATIENT
  Age: 52 Year
  Sex: Male

DRUGS (2)
  1. OXALIPLATIN [Suspect]
     Active Substance: OXALIPLATIN
     Indication: Gastric cancer
     Dosage: UNK
     Route: 033
  2. OXALIPLATIN [Suspect]
     Active Substance: OXALIPLATIN
     Dosage: UNK
     Route: 033

REACTIONS (7)
  - Anaphylactic shock [Unknown]
  - Drug hypersensitivity [Unknown]
  - Erythema [Unknown]
  - Hypotension [Unknown]
  - Tachycardia [Unknown]
  - Off label use [Unknown]
  - Off label use [Unknown]
